FAERS Safety Report 5981446-7 (Version None)
Quarter: 2008Q4

REPORT INFORMATION
  Report Type: 
  Country: None (occurrence: None)
  Receive Date: 20081205
  Receipt Date: 20081201
  Transmission Date: 20090506
  Serious: Yes (Hospitalization)
  Sender: FDA-Public Use
  Company Number: US-ELI_LILLY_AND_COMPANY-US200812000401

PATIENT
  Age: 48 Year
  Sex: Female

DRUGS (3)
  1. HUMALOG [Suspect]
     Indication: DIABETES MELLITUS
     Dosage: 8 U, AS NEEDED
  2. LEVEMIR [Concomitant]
     Dosage: 5 U, 2/D
  3. MORPHINE [Concomitant]
     Dates: start: 19980101

REACTIONS (5)
  - BLOOD GLUCOSE DECREASED [None]
  - BLOOD GLUCOSE INCREASED [None]
  - HYPERSENSITIVITY [None]
  - MULTIPLE SCLEROSIS [None]
  - PLEURAL EFFUSION [None]
